FAERS Safety Report 4683722-7 (Version None)
Quarter: 2005Q2

REPORT INFORMATION
  Report Type: 
  Country: None (occurrence: None)
  Receive Date: 20050607
  Receipt Date: 20050228
  Transmission Date: 20051028
  Serious: Yes (Life-Threatening, Hospitalization)
  Sender: FDA-Public Use
  Company Number: GB-ABBOTT-05P-167-0292198-00

PATIENT
  Sex: Male

DRUGS (10)
  1. HELICLEAR [Suspect]
     Indication: HELICOBACTER INFECTION
     Route: 048
     Dates: start: 20050112, end: 20050119
  2. HELICLEAR [Suspect]
     Indication: DUODENAL ULCER
  3. LANSOPRAZOLE [Suspect]
     Indication: HELICOBACTER INFECTION
     Route: 048
     Dates: start: 20050112, end: 20050119
  4. LANSOPRAZOLE [Suspect]
     Indication: DUODENAL ULCER
  5. AMOXICILLIN [Suspect]
     Indication: HELICOBACTER INFECTION
     Route: 048
     Dates: start: 20050112, end: 20050119
  6. AMOXICILLIN [Suspect]
     Indication: DUODENAL ULCER
  7. ENALAPRIL MALEATE [Suspect]
     Indication: HYPERTENSION
     Route: 048
     Dates: start: 20020624, end: 20050127
  8. CLOPIDOGREL BISULFATE [Concomitant]
     Indication: DRUG USE FOR UNKNOWN INDICATION
  9. NIFEDIPINE [Concomitant]
     Indication: DRUG USE FOR UNKNOWN INDICATION
  10. ATORVASTATIN CALCIUM [Concomitant]
     Indication: DRUG USE FOR UNKNOWN INDICATION

REACTIONS (3)
  - ACUTE PRERENAL FAILURE [None]
  - DEHYDRATION [None]
  - DIARRHOEA [None]
